FAERS Safety Report 4279155-8 (Version None)
Quarter: 2004Q1

REPORT INFORMATION
  Report Type: 
  Country: None (occurrence: None)
  Receive Date: 20040122
  Receipt Date: 20040116
  Transmission Date: 20041129
  Serious: Yes (Other)
  Sender: FDA-Public Use
  Company Number: 2004-01-0652

PATIENT
  Age: 40 Year
  Sex: Female

DRUGS (1)
  1. AERIUS (DESLORATADINE)                ^LIKE CLARINEX^ [Suspect]
     Indication: RHINITIS
     Dosage: 5 MG ORAL
     Route: 048
     Dates: start: 20031215, end: 20031201

REACTIONS (2)
  - ASTHMA [None]
  - BRONCHOSPASM [None]
